FAERS Safety Report 4721094-X (Version None)
Quarter: 2005Q3

REPORT INFORMATION
  Report Type: 
  Country: None (occurrence: None)
  Receive Date: 20050719
  Receipt Date: 20041229
  Transmission Date: 20060218
  Serious: Yes (Other)
  Sender: FDA-Public Use
  Company Number: 2004097101

PATIENT
  Age: 63 Year
  Sex: Male

DRUGS (13)
  1. CELEBREX [Suspect]
     Indication: RHEUMATOID ARTHRITIS
     Dosage: 400 MG (200 MG,2 IN 1 D), ORAL
     Route: 048
     Dates: start: 20041001, end: 20041122
  2. HYDROXYCHLOROQUINE PHOSPHATE (HYDROXYCHLOROQUINE PHOSPHATE) [Concomitant]
  3. DOXAZOSIN MESYLATE [Concomitant]
  4. VERAPAMIL HCL [Concomitant]
  5. HYDROCHLOROTHIAZIDE [Concomitant]
  6. FLUTICASONE PROPIONATE [Concomitant]
  7. BUPROPION HYDROCHLORIDE [Concomitant]
  8. PREDNISONE [Concomitant]
  9. FAMOTIDINE [Concomitant]
  10. PAROXETINE HCL [Concomitant]
  11. PROPACET 100 [Concomitant]
  12. GABAPENTIN [Concomitant]
  13. AXOTAL [Concomitant]

REACTIONS (6)
  - DRUG HYPERSENSITIVITY [None]
  - DYSPNOEA [None]
  - HYPERSENSITIVITY [None]
  - PHARYNGEAL OEDEMA [None]
  - THROAT TIGHTNESS [None]
  - TONGUE OEDEMA [None]
